FAERS Safety Report 9244923 (Version 1)
Quarter: 2013Q1

REPORT INFORMATION
  Report Type: Spontaneous
  Country: US (occurrence: None)
  Receive Date: 20121130
  Receipt Date: 20121130
  Transmission Date: 20140127
  Serious: Yes (Other)
  Sender: FDA-Public Use
  Company Number: PHEH2012US001489

PATIENT
  Age: 42 None
  Sex: Female

DRUGS (1)
  1. LAMISIL [Suspect]
     Dosage: ORAL

REACTIONS (3)
  - Ageusia [None]
  - Hypophagia [None]
  - Weight decreased [None]
